FAERS Safety Report 9941282 (Version 1)
Quarter: 2014Q1

REPORT INFORMATION
  Report Type: Report from Study
  Country: US (occurrence: US)
  Receive Date: 20140303
  Receipt Date: 20140303
  Transmission Date: 20141002
  Serious: Yes (Hospitalization, Other)
  Sender: FDA-Public Use
  Company Number: US-ABBVIE-13P-163-1042822-00

PATIENT
  Age: 39 Year
  Sex: Female

DRUGS (3)
  1. HUMIRA [Suspect]
     Indication: CROHN^S DISEASE
     Dates: start: 2010, end: 20121220
  2. 20 UNKNOWN MEDICATIONS [Concomitant]
     Indication: PRODUCT USED FOR UNKNOWN INDICATION
  3. AMOXICILLIN [Concomitant]

REACTIONS (7)
  - Cholecystectomy [Not Recovered/Not Resolved]
  - Abdominal discomfort [Unknown]
  - Sinusitis [Unknown]
  - Candida infection [Unknown]
  - Candida infection [Unknown]
  - Sinusitis [Unknown]
  - Crohn^s disease [Unknown]
